FAERS Safety Report 10587055 (Version 1)
Quarter: 2014Q4

REPORT INFORMATION
  Report Type: Spontaneous
  Country: US (occurrence: US)
  Receive Date: 20141117
  Receipt Date: 20141117
  Transmission Date: 20150529
  Serious: Yes (Hospitalization)
  Sender: FDA-Public Use
  Company Number: US-JNJFOC-20141106679

PATIENT
  Sex: Male

DRUGS (1)
  1. HALDOL [Suspect]
     Active Substance: HALOPERIDOL
     Indication: TOURETTE^S DISORDER
     Route: 065

REACTIONS (2)
  - Psychotic disorder [Unknown]
  - Medication error [Unknown]
